FAERS Safety Report 4860243-X (Version None)
Quarter: 2005Q4

REPORT INFORMATION
  Report Type: 
  Country: None (occurrence: None)
  Receive Date: 20051215
  Receipt Date: 20001201
  Transmission Date: 20060501
  Serious: Yes (Hospitalization)
  Sender: FDA-Public Use
  Company Number: PHEH2005US13101

PATIENT
  Age: 83 Year
  Sex: Female

DRUGS (9)
  1. VISUDYNE [Suspect]
     Indication: MACULAR DEGENERATION
     Dosage: 5.7 ML DAILY, IV
     Route: 042
     Dates: start: 20051129, end: 20051129
  2. KENALOG [Suspect]
     Dosage: 0.1 ML DAILY, EY
     Dates: start: 20051129, end: 20051129
  3. AMARYL [Concomitant]
  4. DEMADEX [Concomitant]
  5. PREVACID [Concomitant]
  6. CARDIZEM [Concomitant]
  7. SYNTHROID [Concomitant]
  8. GLUCOTROL [Concomitant]
  9. MONOPRIL [Concomitant]

REACTIONS (1)
  - PANCREATITIS ACUTE [None]
